FAERS Safety Report 13795725 (Version 3)
Quarter: 2017Q3

REPORT INFORMATION
  Report Type: Other
  Country: FI (occurrence: FI)
  Receive Date: 20170726
  Receipt Date: 20170905
  Transmission Date: 20171127
  Serious: Yes (Disabling)
  Sender: FDA-Public Use
  Company Number: FI-CELLTRION HEALTHCARE JAPAN K.K.-2017FI009631

PATIENT

DRUGS (5)
  1. INFLECTRA [Suspect]
     Active Substance: INFLIXIMAB-DYYB
     Indication: CROHN^S DISEASE
     Dosage: 400 MG, UNK
     Route: 042
     Dates: start: 20160127, end: 20160127
  2. INFLECTRA [Suspect]
     Active Substance: INFLIXIMAB-DYYB
     Dosage: 400 MG, UNK
     Route: 042
     Dates: start: 20160309, end: 20160309
  3. SOMAC [Concomitant]
     Active Substance: PANTOPRAZOLE SODIUM
     Indication: DYSPEPSIA
     Dosage: 40 UNK, UNK
     Route: 048
  4. TENOX                              /00393701/ [Concomitant]
     Dosage: 20 UNK, UNK
     Route: 048
  5. INFLECTRA [Suspect]
     Active Substance: INFLIXIMAB-DYYB
     Dosage: 400 MG, UNK
     Route: 042
     Dates: start: 20160419, end: 20160419

REACTIONS (6)
  - Drug ineffective [Recovered/Resolved]
  - Asthenia [Recovered/Resolved]
  - Feeling abnormal [Recovered/Resolved]
  - Rectal haemorrhage [Recovered/Resolved]
  - Frequent bowel movements [Recovered/Resolved]
  - Quality of life decreased [Recovered/Resolved]

NARRATIVE: CASE EVENT DATE: 2016
